FAERS Safety Report 11814685 (Version 1)
Quarter: 2015Q4

REPORT INFORMATION
  Report Type: Other
  Country: KR (occurrence: KR)
  Receive Date: 20151209
  Receipt Date: 20151209
  Transmission Date: 20160305
  Serious: Yes (Other)
  Sender: FDA-Public Use
  Company Number: KR-COR_00436_2015

PATIENT
  Age: 50 Year
  Sex: Female

DRUGS (3)
  1. PACLITAXEL. [Suspect]
     Active Substance: PACLITAXEL
     Indication: ENDOMETRIAL CANCER STAGE III
     Dosage: DF
  2. RADIOTHERAPY [Suspect]
     Active Substance: RADIATION THERAPY
     Indication: ENDOMETRIAL CANCER STAGE III
     Dosage: DF
  3. CARBOPLATIN. [Suspect]
     Active Substance: CARBOPLATIN
     Indication: ENDOMETRIAL CANCER STAGE III
     Dosage: DF

REACTIONS (2)
  - B precursor type acute leukaemia [Unknown]
  - Second primary malignancy [None]
